FAERS Safety Report 13875851 (Version 5)
Quarter: 2023Q1

REPORT INFORMATION
  Report Type: Spontaneous
  Country: US (occurrence: US)
  Receive Date: 20170817
  Receipt Date: 20230224
  Transmission Date: 20230418
  Serious: No
  Sender: FDA-Public Use
  Company Number: US-AMGEN-USASP2017122132

PATIENT
  Age: 59 Year
  Sex: Female

DRUGS (1)
  1. ENBREL [Suspect]
     Active Substance: ETANERCEPT
     Indication: Rheumatoid arthritis
     Dosage: UNK
     Route: 065
     Dates: start: 2013

REACTIONS (2)
  - Therapeutic product effect incomplete [Unknown]
  - Drug hypersensitivity [Unknown]
